FAERS Safety Report 14985815 (Version 2)
Quarter: 2018Q2

REPORT INFORMATION
  Report Type: Spontaneous
  Country: JP (occurrence: JP)
  Receive Date: 20180607
  Receipt Date: 20180619
  Transmission Date: 20180711
  Serious: Yes (Hospitalization)
  Sender: FDA-Public Use
  Company Number: JP-PFIZER INC-2018095613

PATIENT
  Age: 28 Year
  Sex: Female
  Weight: 55 kg

DRUGS (9)
  1. CALONAL [Suspect]
     Active Substance: ACETAMINOPHEN
     Dosage: 300 MG, 4X/DAY
     Route: 048
     Dates: start: 20170117, end: 20170121
  2. DOMPERIDONE [Suspect]
     Active Substance: DOMPERIDONE
     Indication: INFECTIOUS MONONUCLEOSIS
     Dosage: 10 MG, 3X/DAY
     Route: 048
     Dates: start: 20170114, end: 20170116
  3. LANSOPRAZOLE. [Suspect]
     Active Substance: LANSOPRAZOLE
     Indication: GASTRIC DISORDER
     Dosage: 30 MG, 4X/DAY
     Route: 048
     Dates: start: 20170114, end: 20170121
  4. LOXONIN [Suspect]
     Active Substance: LOXOPROFEN SODIUM
     Indication: UPPER RESPIRATORY TRACT INFLAMMATION
     Dosage: 60 MG, AS NEEDED
     Dates: start: 20170112
  5. PONSTEL [Suspect]
     Active Substance: MEFENAMIC ACID
     Indication: INFECTIOUS MONONUCLEOSIS
     Dosage: 8 ML, 3X/DAY
     Route: 048
     Dates: start: 20170114, end: 20170121
  6. CALONAL [Suspect]
     Active Substance: ACETAMINOPHEN
     Indication: INFECTIOUS MONONUCLEOSIS
     Dosage: 300 MG, 3X/DAY
     Route: 048
     Dates: start: 20170115, end: 20170116
  7. CEFTRIAXONE SODIUM. [Suspect]
     Active Substance: CEFTRIAXONE SODIUM
     Indication: TONSILLITIS
     Dosage: 1 G, 2X/DAY
     Route: 042
     Dates: start: 20170113, end: 20170121
  8. MIYA-BM [Suspect]
     Active Substance: CLOSTRIDIUM BUTYRICUM SPORES STRAIN M-55
     Indication: PROPHYLAXIS AGAINST DIARRHOEA
     Dosage: 20 MG, 3X/DAY
     Route: 048
     Dates: start: 20170114, end: 20170121
  9. CLARITHROMYCIN. [Suspect]
     Active Substance: CLARITHROMYCIN
     Indication: TONSILLITIS
     Dosage: 200 MG, 2X/DAY
     Route: 048
     Dates: start: 20170121, end: 20170121

REACTIONS (1)
  - Drug reaction with eosinophilia and systemic symptoms [Recovered/Resolved]

NARRATIVE: CASE EVENT DATE: 20170121
